FAERS Safety Report 19170583 (Version 2)
Quarter: 2021Q2

REPORT INFORMATION
  Report Type: Spontaneous
  Country: US (occurrence: US)
  Receive Date: 20210422
  Receipt Date: 20210625
  Transmission Date: 20210717
  Serious: Yes (Hospitalization)
  Sender: FDA-Public Use
  Company Number: US-TEVA-2021-US-1902731

PATIENT
  Age: 43 Year
  Sex: Female

DRUGS (4)
  1. PREDNISONE. [Suspect]
     Active Substance: PREDNISONE
     Indication: THROMBOCYTOPENIA
     Route: 065
  2. IVIG [Suspect]
     Active Substance: HUMAN IMMUNOGLOBULIN G
     Indication: THROMBOCYTOPENIA
     Route: 042
  3. HYDROXYCHLOROQUINE [Suspect]
     Active Substance: HYDROXYCHLOROQUINE
     Indication: THROMBOCYTOPENIA
     Route: 065
  4. METHYLPREDNISOLONE. [Suspect]
     Active Substance: METHYLPREDNISOLONE
     Indication: THROMBOCYTOPENIA
     Dosage: TWO PULSES
     Route: 042

REACTIONS (3)
  - Treatment failure [Unknown]
  - Weight increased [Recovered/Resolved]
  - Steroid diabetes [Recovered/Resolved]
